FAERS Safety Report 8200988-7 (Version None)
Quarter: 2012Q1

REPORT INFORMATION
  Report Type: 
  Country: None (occurrence: None)
  Receive Date: 20120305
  Receipt Date: 20120220
  Transmission Date: 20120608
  Serious: Yes (Hospitalization)
  Sender: FDA-Public Use
  Company Number: 2012031399

PATIENT
  Age: 51 Year
  Sex: Male

DRUGS (5)
  1. VIVAGLOBIN [Suspect]
     Indication: CHRONIC LYMPHOCYTIC LEUKAEMIA
     Dosage: 6.4 G 1X/WEEK, INTRAVENOUS (NOT OTHERWISE SPECIFIED), 160MG/ML EVERY 7 DAYS
     Route: 042
     Dates: start: 20111025
  2. GANCICLOVIR [Concomitant]
  3. VORICONAZOLE [Concomitant]
  4. PREDNISONE TAB [Concomitant]
  5. ACT HIB (HAEMOPHILUS B CONJUGATE VACCINE) [Concomitant]

REACTIONS (11)
  - HAEMOGLOBIN DECREASED [None]
  - POLYURIA [None]
  - WHITE BLOOD CELL COUNT INCREASED [None]
  - WHITE BLOOD CELL COUNT DECREASED [None]
  - BONE MARROW DISORDER [None]
  - CYTOMEGALOVIRUS TEST POSITIVE [None]
  - OFF LABEL USE [None]
  - THROMBOCYTOPENIA [None]
  - GRAFT VERSUS HOST DISEASE [None]
  - POLYDIPSIA [None]
  - INCORRECT ROUTE OF DRUG ADMINISTRATION [None]
